FAERS Safety Report 25027782 (Version 2)
Quarter: 2025Q1

REPORT INFORMATION
  Report Type: Spontaneous
  Country: US (occurrence: US)
  Receive Date: 20250301
  Receipt Date: 20250312
  Transmission Date: 20250409
  Serious: No
  Sender: SANOFI AVENTIS
  Company Number: US-SANOFI-02426709

PATIENT
  Age: 32 Year
  Sex: Female

DRUGS (1)
  1. TOUJEO MAX [Suspect]
     Active Substance: INSULIN GLARGINE
     Indication: Type 2 diabetes mellitus
     Dosage: 32 IU, QD
     Route: 065

REACTIONS (3)
  - Blood glucose increased [Unknown]
  - Incorrect dose administered by device [Unknown]
  - Device mechanical issue [Unknown]
